FAERS Safety Report 17680578 (Version 1)
Quarter: 2020Q2

REPORT INFORMATION
  Report Type: Spontaneous
  Country: US (occurrence: US)
  Receive Date: 20200417
  Receipt Date: 20200417
  Transmission Date: 20200714
  Serious: No
  Sender: FDA-Public Use
  Company Number: None

PATIENT
  Age: 47 Year
  Sex: Female

DRUGS (1)
  1. ERENUMAB-AOOE(ERENUMAB-AOOE 140MG/ML AUTOINJECTOR,1ML [Suspect]
     Active Substance: ERENUMAB-AOOE
     Dosage: ?          OTHER STRENGTH:140MG/L, 1ML;?
     Dates: start: 20200115

REACTIONS (3)
  - Rubber sensitivity [None]
  - Constipation [None]
  - Angioedema [None]

NARRATIVE: CASE EVENT DATE: 20200115
